FAERS Safety Report 10279134 (Version 1)
Quarter: 2014Q3

REPORT INFORMATION
  Report Type: Report from Study
  Country: CN (occurrence: CN)
  Receive Date: 20140707
  Receipt Date: 20140707
  Transmission Date: 20150326
  Serious: Yes (Other)
  Sender: FDA-Public Use
  Company Number: CN-ROCHE-1429684

PATIENT
  Age: 47 Year
  Sex: Male

DRUGS (1)
  1. CAPECITABINE [Suspect]
     Active Substance: CAPECITABINE
     Indication: RECTAL CANCER
     Dosage: CONSECUTIVE 2 WEEKS FOLLOWED BY 1-WEEK BREAK.
     Route: 048

REACTIONS (8)
  - Anal prolapse [Unknown]
  - Fatigue [Unknown]
  - Decreased appetite [Unknown]
  - Rectal tenesmus [Unknown]
  - Abdominal pain [Unknown]
  - White blood cell count decreased [Unknown]
  - Diarrhoea [Unknown]
  - Skin disorder [Unknown]
